FAERS Safety Report 19965028 (Version 3)
Quarter: 2023Q2

REPORT INFORMATION
  Report Type: Report from Study
  Country: US (occurrence: US)
  Receive Date: 20211018
  Receipt Date: 20230630
  Transmission Date: 20230721
  Serious: Yes (Hospitalization, Other)
  Sender: FDA-Public Use
  Company Number: US-GW PHARMA-202110USGW05013

PATIENT
  Sex: Male

DRUGS (2)
  1. EPIDIOLEX [Suspect]
     Active Substance: CANNABIDIOL
     Indication: Lennox-Gastaut syndrome
     Dosage: 1000 MILLIGRAM, BID
     Route: 048
     Dates: start: 202103
  2. EPIDIOLEX [Suspect]
     Active Substance: CANNABIDIOL
     Dosage: 10 MILLILITER, BID
     Route: 048
     Dates: start: 202103

REACTIONS (2)
  - Seizure [Recovered/Resolved]
  - Weight increased [Unknown]

NARRATIVE: CASE EVENT DATE: 20210101
